FAERS Safety Report 8168414-4 (Version None)
Quarter: 2012Q1

REPORT INFORMATION
  Report Type: 
  Country: None (occurrence: None)
  Receive Date: 20120227
  Receipt Date: 20120222
  Transmission Date: 20120608
  Serious: Yes (Other)
  Sender: FDA-Public Use
  Company Number: US-PFIZER INC-2012047444

PATIENT
  Sex: Male
  Weight: 113.38 kg

DRUGS (5)
  1. GABAPENTIN [Suspect]
     Indication: PAIN
  2. MULTI-VITAMINS [Concomitant]
     Dosage: UNK
  3. GABAPENTIN [Suspect]
     Indication: PLANTAR FASCIITIS
     Dosage: 300 MG, 3X/DAY
     Route: 048
  4. METFORMIN [Concomitant]
     Dosage: UNK
  5. GEMFIBROZIL [Concomitant]
     Dosage: UNK

REACTIONS (3)
  - DIABETES MELLITUS [None]
  - FLATULENCE [None]
  - MUSCULAR WEAKNESS [None]
